FAERS Safety Report 6636453-8 (Version None)
Quarter: 2010Q1

REPORT INFORMATION
  Report Type: 
  Country: None (occurrence: None)
  Receive Date: 20100310
  Receipt Date: 20100226
  Transmission Date: 20100710
  Serious: Yes (Other)
  Sender: FDA-Public Use
  Company Number: 1000011892

PATIENT
  Age: 22 Year
  Sex: Female

DRUGS (2)
  1. LEXAPRO [Suspect]
     Indication: DEPRESSIVE SYMPTOM
     Dosage: 20 MG (20 MG, 1 IN 1 D), ORAL
     Route: 048
  2. REMERON [Concomitant]

REACTIONS (3)
  - EUPHORIC MOOD [None]
  - HYPOMANIA [None]
  - TREMOR [None]
